FAERS Safety Report 8817679 (Version 2)
Quarter: 2012Q4

REPORT INFORMATION
  Report Type: 
  Country: TH (occurrence: TH)
  Receive Date: 20121001
  Receipt Date: 20121005
  Transmission Date: 20130627
  Serious: Yes (Hospitalization)
  Sender: FDA-Public Use
  Company Number: PHHY2012TH083495

PATIENT
  Age: 17 Year
  Sex: Male

DRUGS (2)
  1. GLIVEC [Suspect]
     Indication: CHRONIC MYELOID LEUKAEMIA
     Dosage: 200 mg, UNK
     Route: 048
     Dates: start: 20060615
  2. GLIVEC [Suspect]
     Dosage: 400 mg, UNK

REACTIONS (4)
  - Dengue fever [Unknown]
  - Headache [Unknown]
  - Pyrexia [Unknown]
  - White blood cell count decreased [Unknown]
